FAERS Safety Report 4596270-X (Version None)
Quarter: 2005Q1

REPORT INFORMATION
  Report Type: 
  Country: None (occurrence: None)
  Receive Date: 20050224
  Receipt Date: 20050205
  Transmission Date: 20050727
  Serious: Yes (Life-Threatening)
  Sender: FDA-Public Use
  Company Number: CN-2005-002454

PATIENT
  Age: 17 Year
  Sex: Female

DRUGS (1)
  1. ULTRAVIST 300 [Suspect]
     Indication: COMPUTERISED TOMOGRAM
     Dosage: 1 ML, 1 DOSE, INTRAVENOUS
     Route: 042
     Dates: start: 20050201, end: 20050201

REACTIONS (6)
  - ANAPHYLACTIC SHOCK [None]
  - PALLOR [None]
  - PALPITATIONS [None]
  - PULSE ABSENT [None]
  - VISION BLURRED [None]
  - VOMITING [None]
